FAERS Safety Report 21793773 (Version 1)
Quarter: 2022Q4

REPORT INFORMATION
  Report Type: Spontaneous
  Country: FR (occurrence: FR)
  Receive Date: 20221229
  Receipt Date: 20221229
  Transmission Date: 20230113
  Serious: Yes (Hospitalization)
  Sender: FDA-Public Use
  Company Number: None

PATIENT
  Age: 58 Year
  Sex: Male
  Weight: 57 kg

DRUGS (2)
  1. TEGRETOL [Suspect]
     Active Substance: CARBAMAZEPINE
     Indication: Post-traumatic neuralgia
     Dosage: 200 MG (1 DEMI-COMPRIME TOUS LES MATINS PENDANT 2 JOURS.PUIS 1 DEMI-COMPRIME TOUS LES MATIN ET SOIR
     Route: 048
     Dates: start: 20220715, end: 20220725
  2. AMITRIPTYLINE HYDROCHLORIDE [Suspect]
     Active Substance: AMITRIPTYLINE HYDROCHLORIDE
     Indication: Post-traumatic neuralgia
     Dosage: 10 DOSAGE FORM (10 GOUTTES AU COUCHER TOUS LES JOURS)
     Route: 048
     Dates: start: 20220715, end: 20220725

REACTIONS (1)
  - Stevens-Johnson syndrome [Recovered/Resolved]

NARRATIVE: CASE EVENT DATE: 20220729
